FAERS Safety Report 20041335 (Version 3)
Quarter: 2021Q4

REPORT INFORMATION
  Report Type: Report from Study
  Country: US (occurrence: US)
  Receive Date: 20211107
  Receipt Date: 20211116
  Transmission Date: 20220303
  Serious: Yes (Hospitalization, Other)
  Sender: FDA-Public Use
  Company Number: US-JNJFOC-20211106103

PATIENT
  Age: 27 Year
  Sex: Female
  Weight: 60.382 kg

DRUGS (2)
  1. INFLIXIMAB [Suspect]
     Active Substance: INFLIXIMAB
     Indication: Inflammatory bowel disease
     Route: 042
     Dates: start: 20080328, end: 20140418
  2. HUMIRA [Concomitant]
     Active Substance: ADALIMUMAB
     Indication: Inflammatory bowel disease
     Route: 065

REACTIONS (2)
  - Ectopic pregnancy [Recovered/Resolved]
  - Pregnancy [Recovered/Resolved]

NARRATIVE: CASE EVENT DATE: 20210612
